FAERS Safety Report 4690041-1 (Version None)
Quarter: 2005Q2

REPORT INFORMATION
  Report Type: 
  Country: None (occurrence: None)
  Receive Date: 20050614
  Receipt Date: 20050530
  Transmission Date: 20051028
  Serious: Yes (Death, Hospitalization, Other)
  Sender: FDA-Public Use
  Company Number: 2005081284

PATIENT
  Age: 55 Year
  Sex: Male

DRUGS (6)
  1. VIAGRA [Suspect]
     Indication: UROGENITAL DISORDER
     Dosage: (25 MEQ, ONCE), ORAL
     Route: 048
     Dates: start: 20050328, end: 20050328
  2. NITROMEX (GLYCERYL TRINITRATE) [Suspect]
     Indication: CARDIAC FAILURE
     Dosage: (ONCE), SUBLINGUAL
     Route: 060
     Dates: start: 20050328, end: 20050328
  3. SELOKEN ZOC (METOPROLOL SUCCINATE) [Concomitant]
  4. RAMIPRIL [Concomitant]
  5. SIMVASTATIN [Concomitant]
  6. ASPIRIN [Concomitant]

REACTIONS (19)
  - ATRIAL FIBRILLATION [None]
  - BUNDLE BRANCH BLOCK LEFT [None]
  - C-REACTIVE PROTEIN INCREASED [None]
  - CARDIAC ARREST [None]
  - CARDIOMYOPATHY [None]
  - ELECTROENCEPHALOGRAM ABNORMAL [None]
  - FALL [None]
  - HYPOTENSION [None]
  - INCREASED UPPER AIRWAY SECRETION [None]
  - LOSS OF CONSCIOUSNESS [None]
  - MUSCLE SPASMS [None]
  - PUPILLARY REFLEX IMPAIRED [None]
  - PYREXIA [None]
  - QUADRIPLEGIA [None]
  - STATUS EPILEPTICUS [None]
  - TACHYCARDIA [None]
  - UNRESPONSIVE TO PAIN STIMULI [None]
  - VENTRICULAR FIBRILLATION [None]
  - WHITE BLOOD CELL COUNT INCREASED [None]
